FAERS Safety Report 6100457-4 (Version None)
Quarter: 2009Q1

REPORT INFORMATION
  Report Type: 
  Country: None (occurrence: None)
  Receive Date: 20090227
  Receipt Date: 20090227
  Transmission Date: 20090719
  Serious: Yes (Hospitalization)
  Sender: FDA-Public Use
  Company Number: None

PATIENT
  Age: 54 Year
  Sex: Male
  Weight: 76.2043 kg

DRUGS (4)
  1. LISINOPRIL [Suspect]
     Dosage: 10 MG 1 TIME/DAY PO
     Route: 048
     Dates: start: 20081230, end: 20081231
  2. LANTUS [Concomitant]
  3. NOVOLOG [Concomitant]
  4. ASPIRIN [Concomitant]

REACTIONS (1)
  - TRANSIENT ISCHAEMIC ATTACK [None]
